FAERS Safety Report 5534136-9 (Version None)
Quarter: 2007Q4

REPORT INFORMATION
  Report Type: 
  Country: None (occurrence: None)
  Receive Date: 20071130
  Receipt Date: 20071116
  Transmission Date: 20080405
  Serious: Yes (Life-Threatening)
  Sender: FDA-Public Use
  Company Number: 2007AL004939

PATIENT
  Age: 67 Year
  Sex: Male

DRUGS (6)
  1. CITALOPRAM HYDROBROMIDE [Suspect]
     Indication: DEPRESSION
     Dosage: 40 MG QD PO
     Route: 048
  2. DICLOFENAC SODIUM [Suspect]
     Indication: PAIN
     Dosage: 75 MG QD PO
     Route: 048
  3. ASPIRIN [Concomitant]
  4. AMLODIPINE [Concomitant]
  5. ATORVASTATIN [Concomitant]
  6. ISOSORBIDE MONONITRATE [Concomitant]

REACTIONS (4)
  - ACUTE CORONARY SYNDROME [None]
  - HAEMOGLOBIN DECREASED [None]
  - MYOCARDIAL ISCHAEMIA [None]
  - UPPER GASTROINTESTINAL HAEMORRHAGE [None]
